FAERS Safety Report 4469400-8 (Version None)
Quarter: 2004Q4

REPORT INFORMATION
  Report Type: 
  Country: None (occurrence: None)
  Receive Date: 20041008
  Receipt Date: 20040521
  Transmission Date: 20050328
  Serious: No
  Sender: FDA-Public Use
  Company Number: US-BRISTOL-MYERS SQUIBB COMPANY-12593869

PATIENT
  Age: 46 Year
  Sex: Male
  Weight: 79 kg

DRUGS (5)
  1. AVAPRO [Suspect]
     Indication: HYPERTENSION
     Route: 048
  2. CLONIDINE HCL [Concomitant]
  3. LISINOPRIL [Concomitant]
  4. RENAGEL [Concomitant]
     Dosage: 800 MG 4-5 CAPSULES WITH EACH MEAL
  5. PRILOSEC [Concomitant]

REACTIONS (1)
  - DYSPNOEA EXACERBATED [None]
